FAERS Safety Report 9152005 (Version 1)
Quarter: 2013Q1

REPORT INFORMATION
  Report Type: Spontaneous
  Country: CN (occurrence: CN)
  Receive Date: 20130308
  Receipt Date: 20130308
  Transmission Date: 20140127
  Serious: Yes (Hospitalization)
  Sender: FDA-Public Use
  Company Number: CN-GLAXOSMITHKLINE-B0870248A

PATIENT
  Age: 10 Year
  Sex: Female

DRUGS (1)
  1. LAMOTRIGINE [Suspect]
     Indication: EPILEPSY
     Dosage: 25MG PER DAY
     Route: 048

REACTIONS (17)
  - Stevens-Johnson syndrome [Recovered/Resolved]
  - Rash [Unknown]
  - Pyrexia [Unknown]
  - Mouth ulceration [Unknown]
  - Pruritus [Unknown]
  - Oral mucosa erosion [Unknown]
  - Mouth haemorrhage [Unknown]
  - Rash erythematous [Unknown]
  - Erythema [Unknown]
  - Blister [Unknown]
  - Skin erosion [Unknown]
  - Wound complication [Unknown]
  - Nikolsky^s sign [Unknown]
  - Oral pain [Unknown]
  - Depression [Unknown]
  - Communication disorder [Unknown]
  - Anxiety [Unknown]
